FAERS Safety Report 9961766 (Version 2)
Quarter: 2014Q1

REPORT INFORMATION
  Report Type: Spontaneous
  Country: PR (occurrence: PR)
  Receive Date: 20140305
  Receipt Date: 20140305
  Transmission Date: 20141002
  Serious: No
  Sender: FDA-Public Use
  Company Number: PR-ABBVIE-12P-131-1019738-00

PATIENT
  Age: 44 Year
  Sex: Female
  Weight: 78.54 kg

DRUGS (11)
  1. HUMIRA [Suspect]
     Indication: RHEUMATOID ARTHRITIS
     Route: 058
     Dates: end: 201211
  2. HUMIRA [Suspect]
     Route: 058
     Dates: start: 201212, end: 201304
  3. SYNTHROID [Concomitant]
     Indication: HYPOTHYROIDISM
     Route: 048
  4. PREDNISONE [Concomitant]
     Indication: RHEUMATOID ARTHRITIS
     Route: 048
  5. METHOTREXATE [Concomitant]
     Indication: RHEUMATOID ARTHRITIS
     Route: 048
  6. VITAMIN OMEGA [Concomitant]
     Indication: PROPHYLAXIS
     Route: 048
  7. VITAMIN D [Concomitant]
     Indication: RHEUMATOID ARTHRITIS
     Route: 048
  8. FOLIC ACID [Concomitant]
     Indication: RHEUMATOID ARTHRITIS
     Route: 048
  9. ZANTAC [Concomitant]
     Indication: PRODUCT USED FOR UNKNOWN INDICATION
     Route: 048
  10. RANITIDINE [Concomitant]
     Indication: PRODUCT USED FOR UNKNOWN INDICATION
     Route: 048
  11. TRAMADOL [Concomitant]
     Indication: PAIN
     Route: 048

REACTIONS (2)
  - Immune system disorder [Not Recovered/Not Resolved]
  - Influenza [Recovered/Resolved]
